FAERS Safety Report 8927463 (Version 2)
Quarter: 2013Q1

REPORT INFORMATION
  Report Type: Spontaneous
  Country: US (occurrence: US)
  Receive Date: 20121127
  Receipt Date: 20130306
  Transmission Date: 20140127
  Serious: Yes (Death)
  Sender: FDA-Public Use
  Company Number: US-GILEAD-2012-0065150

PATIENT
  Sex: Male

DRUGS (2)
  1. CAYSTON [Suspect]
     Indication: CYSTIC FIBROSIS
     Dosage: UNK
     Dates: start: 20100414, end: 20110415
  2. CAYSTON [Suspect]
     Indication: PSEUDOMONAS INFECTION

REACTIONS (1)
  - Respiratory failure [Fatal]
